FAERS Safety Report 25507505 (Version 2)
Quarter: 2025Q3

REPORT INFORMATION
  Report Type: Spontaneous
  Country: JP (occurrence: JP)
  Receive Date: 20250703
  Receipt Date: 20250722
  Transmission Date: 20251021
  Serious: Yes (Hospitalization, Other)
  Sender: SANOFI AVENTIS
  Company Number: JP-SA-2025SA184130

PATIENT
  Age: 65 Year
  Sex: Male

DRUGS (3)
  1. DUPIXENT [Suspect]
     Active Substance: DUPILUMAB
     Indication: Chronic rhinosinusitis with nasal polyps
     Dosage: 300 MG, QOW
     Route: 058
     Dates: start: 20230403, end: 202309
  2. DUPIXENT [Suspect]
     Active Substance: DUPILUMAB
     Indication: Asthma
     Route: 058
     Dates: start: 20230320, end: 20230320
  3. BETAMETHASONE [Concomitant]
     Active Substance: BETAMETHASONE
     Indication: Chronic eosinophilic rhinosinusitis
     Route: 048

REACTIONS (12)
  - Diabetes insipidus [Recovered/Resolved]
  - Malaise [Recovered/Resolved]
  - Polydipsia [Recovered/Resolved]
  - Polyuria [Recovered/Resolved]
  - Weight decreased [Recovered/Resolved]
  - Headache [Recovered/Resolved]
  - Pollakiuria [Recovered/Resolved]
  - Thirst [Recovered/Resolved]
  - Eosinophilic otitis media [Unknown]
  - Langerhans^ cell histiocytosis [Unknown]
  - Lymphocytic hypophysitis [Recovering/Resolving]
  - Sarcoidosis [Unknown]

NARRATIVE: CASE EVENT DATE: 20230501
